FAERS Safety Report 25270502 (Version 1)
Quarter: 2025Q2

REPORT INFORMATION
  Report Type: Spontaneous
  Country: US (occurrence: US)
  Receive Date: 20250505
  Receipt Date: 20250505
  Transmission Date: 20250716
  Serious: No
  Sender: MERCK SHARP & DOHME LLC
  Company Number: US-009507513-2282072

PATIENT
  Sex: Female
  Weight: 61.2 kg

DRUGS (22)
  1. SOTATERCEPT [Suspect]
     Active Substance: SOTATERCEPT
     Indication: Product used for unknown indication
     Route: 065
  2. SOTATERCEPT [Suspect]
     Active Substance: SOTATERCEPT
  3. SOTATERCEPT [Suspect]
     Active Substance: SOTATERCEPT
  4. SOTATERCEPT [Suspect]
     Active Substance: SOTATERCEPT
  5. SILDENAFIL [Concomitant]
     Active Substance: SILDENAFIL
  6. FAMOTIDINE [Concomitant]
     Active Substance: FAMOTIDINE
  7. TREPROSTINIL SODIUM [Suspect]
     Active Substance: TREPROSTINIL SODIUM
     Indication: Pulmonary arterial hypertension
     Route: 058
     Dates: start: 20241212
  8. POTASSIUM CHLORIDE [Concomitant]
     Active Substance: POTASSIUM CHLORIDE
  9. hydrocodone (+) acetaminofen [Concomitant]
  10. MAGNESIUM OXIDE [Concomitant]
     Active Substance: MAGNESIUM OXIDE
  11. ELIQUIS [Concomitant]
     Active Substance: APIXABAN
  12. SODIUM CHLORIDE [Concomitant]
     Active Substance: SODIUM CHLORIDE
  13. HEPARIN [Concomitant]
     Active Substance: HEPARIN SODIUM
  14. OPSUMIT [Concomitant]
     Active Substance: MACITENTAN
  15. FLUTICASONE PROPIONATE [Concomitant]
     Active Substance: FLUTICASONE PROPIONATE
  16. HIBICLENS [Concomitant]
     Active Substance: CHLORHEXIDINE GLUCONATE
  17. LIDOCAINE [Concomitant]
     Active Substance: LIDOCAINE
  18. PROMETHAZINE HYDROCHLORIDE [Concomitant]
     Active Substance: PROMETHAZINE HYDROCHLORIDE
  19. TORSEMIDE [Concomitant]
     Active Substance: TORSEMIDE
  20. ONDANSETRON [Concomitant]
     Active Substance: ONDANSETRON
  21. BUTALBITAL, ACETAMINOPHEN, AND CAFFEINE [Concomitant]
     Active Substance: ACETAMINOPHEN\BUTALBITAL\CAFFEINE
  22. DEXAMETHASONE [Concomitant]
     Active Substance: DEXAMETHASONE

REACTIONS (1)
  - Fatigue [Unknown]
